FAERS Safety Report 6451272-3 (Version None)
Quarter: 2009Q4

REPORT INFORMATION
  Report Type: 
  Country: None (occurrence: None)
  Receive Date: 20091123
  Receipt Date: 20091027
  Transmission Date: 20100525
  Serious: Yes (Other)
  Sender: FDA-Public Use
  Company Number: US-AMGEN-QUU371493

PATIENT
  Sex: Female

DRUGS (3)
  1. ENBREL [Suspect]
     Indication: RHEUMATOID ARTHRITIS
     Route: 058
     Dates: start: 20081001
  2. METHOTREXATE [Concomitant]
  3. PLAQUENIL [Concomitant]

REACTIONS (4)
  - COUGH [None]
  - LYMPHOMA [None]
  - OROPHARYNGEAL PAIN [None]
  - SINUSITIS [None]
